FAERS Safety Report 16663844 (Version 2)
Quarter: 2019Q3

REPORT INFORMATION
  Report Type: Spontaneous
  Country: PT (occurrence: PT)
  Receive Date: 20190802
  Receipt Date: 20190930
  Transmission Date: 20191004
  Serious: Yes (Other)
  Sender: FDA-Public Use
  Company Number: PT-TEVA-2019-PT-1087152

PATIENT
  Age: 68 Year
  Sex: Male

DRUGS (4)
  1. SIMVASTATIN. [Concomitant]
     Active Substance: SIMVASTATIN
  2. VALPROIC ACID. [Suspect]
     Active Substance: VALPROIC ACID
     Dosage: TITRATED UP TO 300 MG LP 12/12H
     Dates: start: 201904, end: 20190718
  3. ALLOPURINOL. [Concomitant]
     Active Substance: ALLOPURINOL
  4. EDARCLOR [Concomitant]

REACTIONS (1)
  - Erectile dysfunction [Unknown]

NARRATIVE: CASE EVENT DATE: 201904
